APPROVED DRUG PRODUCT: TOBRAMYCIN
Active Ingredient: TOBRAMYCIN
Strength: 0.3%
Dosage Form/Route: SOLUTION/DROPS;OPHTHALMIC
Application: A207444 | Product #001 | TE Code: AT
Applicant: SOMERSET THERAPEUTICS LLC
Approved: Jun 28, 2017 | RLD: No | RS: Yes | Type: RX